FAERS Safety Report 11156847 (Version 1)
Quarter: 2015Q2

REPORT INFORMATION
  Report Type: Spontaneous
  Country: US (occurrence: US)
  Receive Date: 20150602
  Receipt Date: 20150602
  Transmission Date: 20150821
  Serious: Yes (Congenital Anomaly, Other)
  Sender: FDA-Public Use
  Company Number: US-ELI_LILLY_AND_COMPANY-US201503004424

PATIENT

DRUGS (2)
  1. PROZAC [Suspect]
     Active Substance: FLUOXETINE HYDROCHLORIDE
     Dosage: 20 MG, QD
     Route: 064
     Dates: start: 199511, end: 199512
  2. PROZAC [Suspect]
     Active Substance: FLUOXETINE HYDROCHLORIDE
     Indication: DEPRESSION
     Dosage: 40 MG, UNKNOWN
     Route: 064

REACTIONS (6)
  - Exomphalos [Unknown]
  - Foetal exposure during pregnancy [Recovered/Resolved]
  - Small intestinal stenosis [Unknown]
  - Oligohydramnios [Unknown]
  - Gastrooesophageal reflux disease [Unknown]
  - Premature baby [Unknown]
